FAERS Safety Report 17859361 (Version 1)
Quarter: 2020Q2

REPORT INFORMATION
  Report Type: Report from Study
  Country: IL (occurrence: IL)
  Receive Date: 20200604
  Receipt Date: 20200604
  Transmission Date: 20200714
  Serious: Yes (Hospitalization)
  Sender: FDA-Public Use
  Company Number: NVSC2020IL153684

PATIENT
  Sex: Female

DRUGS (2)
  1. SANDOSTATIN LAR DEPOT [Suspect]
     Active Substance: OCTREOTIDE ACETATE
     Indication: PRIMITIVE NEUROECTODERMAL TUMOUR
     Dosage: 30 MG, Q4W
     Route: 030
     Dates: start: 20171103
  2. SANDOSTATIN LAR DEPOT [Suspect]
     Active Substance: OCTREOTIDE ACETATE
     Dosage: 30 MG, Q4W
     Route: 030
     Dates: start: 20200531

REACTIONS (3)
  - Hepatic lesion [Not Recovered/Not Resolved]
  - Nausea [Unknown]
  - Asthenia [Unknown]
